FAERS Safety Report 8285458-2 (Version None)
Quarter: 2012Q2

REPORT INFORMATION
  Report Type: 
  Country: None (occurrence: None)
  Receive Date: 20120413
  Receipt Date: 20110902
  Transmission Date: 20120825
  Serious: No
  Sender: FDA-Public Use
  Company Number: US-ASTRAZENECA-2011SE49129

PATIENT
  Age: 37 Year
  Sex: Female

DRUGS (2)
  1. NEXIUM [Suspect]
     Indication: GASTROOESOPHAGEAL REFLUX DISEASE
     Route: 048
  2. LIDOCAINE HYDROCHLORIDE [Suspect]
     Route: 065

REACTIONS (12)
  - SKIN DISORDER [None]
  - DEPRESSION [None]
  - GASTROOESOPHAGEAL REFLUX DISEASE [None]
  - ANXIETY [None]
  - OSTEOARTHRITIS [None]
  - OSTEOPOROSIS [None]
  - DRUG DOSE OMISSION [None]
  - HYPERLIPIDAEMIA [None]
  - WHEEZING [None]
  - ASTHMA [None]
  - ARTHRALGIA [None]
  - ATTENTION DEFICIT/HYPERACTIVITY DISORDER [None]
